FAERS Safety Report 5722720-9 (Version None)
Quarter: 2008Q2

REPORT INFORMATION
  Report Type: 
  Country: None (occurrence: None)
  Receive Date: 20080429
  Receipt Date: 20070803
  Transmission Date: 20081010
  Serious: No
  Sender: FDA-Public Use
  Company Number: US-ASTRAZENECA-2007UW18740

PATIENT
  Sex: Female

DRUGS (4)
  1. NEXIUM [Suspect]
     Route: 048
     Dates: start: 20070101
  2. EVISTA [Concomitant]
  3. TYLENOL [Concomitant]
  4. AMOXICILLIN [Concomitant]

REACTIONS (2)
  - HEADACHE [None]
  - THROAT IRRITATION [None]
